FAERS Safety Report 7234542-0 (Version None)
Quarter: 2011Q1

REPORT INFORMATION
  Report Type: 
  Country: None (occurrence: None)
  Receive Date: 20110119
  Receipt Date: 20110105
  Transmission Date: 20110831
  Serious: Yes (Other)
  Sender: FDA-Public Use
  Company Number: IT-BAYER-2011-002305

PATIENT
  Sex: Male

DRUGS (1)
  1. ASPIRIN [Suspect]
     Indication: INFLUENZA LIKE ILLNESS
     Dosage: 500 MG, ONCE
     Route: 048
     Dates: start: 20101213, end: 20101213

REACTIONS (1)
  - ANGIOEDEMA [None]
